FAERS Safety Report 9717670 (Version 2)
Quarter: 2014Q1

REPORT INFORMATION
  Report Type: Spontaneous
  Country: US (occurrence: None)
  Receive Date: 20131125
  Receipt Date: 20140204
  Transmission Date: 20141002
  Serious: Yes (Hospitalization)
  Sender: FDA-Public Use
  Company Number: AUR-APL-2013-09697

PATIENT
  Age: 82 Year
  Sex: Female
  Weight: 86.2 kg

DRUGS (3)
  1. LISINOPRIL [Suspect]
     Indication: HYPERTENSION
     Dosage: 10 MG (10 MG, 1 IN 1 D), ORAL
     Route: 048
     Dates: start: 20130720, end: 20130720
  2. NEXIUM (ESOMEPRAZOLE MAGNESIUM) [Concomitant]
  3. DULCOLAX (BISACODYL) [Concomitant]

REACTIONS (1)
  - Drug hypersensitivity [None]
